FAERS Safety Report 7487537-6 (Version None)
Quarter: 2011Q2

REPORT INFORMATION
  Report Type: 
  Country: None (occurrence: None)
  Receive Date: 20110511
  Receipt Date: 20110427
  Transmission Date: 20111010
  Serious: Yes (Hospitalization)
  Sender: FDA-Public Use
  Company Number: 2011AP000868

PATIENT
  Age: 54 Year
  Sex: Female

DRUGS (1)
  1. ALLOPURINOL [Suspect]
     Indication: GOUT
     Dosage: 300 MG TAB, PO
     Route: 048
     Dates: start: 20101020, end: 20101106

REACTIONS (2)
  - FUNGAL INFECTION [None]
  - TOXIC EPIDERMAL NECROLYSIS [None]
